FAERS Safety Report 4679580-7 (Version None)
Quarter: 2005Q2

REPORT INFORMATION
  Report Type: 
  Country: None (occurrence: None)
  Receive Date: 20050531
  Receipt Date: 20050520
  Transmission Date: 20051028
  Serious: Yes (Hospitalization)
  Sender: FDA-Public Use
  Company Number: BRO-008698

PATIENT
  Age: 86 Year
  Sex: Female

DRUGS (1)
  1. IOPAMIDOL-300 [Suspect]
     Indication: COMPUTERISED TOMOGRAM
     Dosage: 80 ML, IV
     Route: 042
     Dates: start: 20050511, end: 20050511

REACTIONS (4)
  - ANAPHYLACTIC SHOCK [None]
  - BLOOD PRESSURE IMMEASURABLE [None]
  - HAEMATEMESIS [None]
  - LOSS OF CONSCIOUSNESS [None]
